FAERS Safety Report 5859030-5 (Version None)
Quarter: 2008Q3

REPORT INFORMATION
  Report Type: 
  Country: None (occurrence: None)
  Receive Date: 20080825
  Receipt Date: 20080808
  Transmission Date: 20090109
  Serious: Yes (Life-Threatening, Hospitalization, Other)
  Sender: FDA-Public Use
  Company Number: 2008EU001477

PATIENT
  Age: 5 Year
  Sex: Male
  Weight: 17 kg

DRUGS (4)
  1. PROGRAF [Suspect]
     Indication: RENAL TRANSPLANT
     Dosage: 3 MG, BID, ORAL
     Route: 048
     Dates: start: 20070729, end: 20080706
  2. MYFORTIC [Suspect]
     Indication: RENAL TRANSPLANT
     Dosage: 360 MG, UID/QD, ORAL
     Route: 048
     Dates: start: 20071003, end: 20080717
  3. CELLCEPT [Suspect]
     Indication: RENAL TRANSPLANT
     Dosage: 360 MG, UID/QD, ORAL
     Route: 048
     Dates: start: 20070729, end: 20071002
  4. CORTICOSTEROIDS [Concomitant]

REACTIONS (9)
  - COLON NEOPLASM [None]
  - DRUG INTOLERANCE [None]
  - GASTRIC NEOPLASM [None]
  - GASTROINTESTINAL NEOPLASM [None]
  - KAPOSI'S SARCOMA [None]
  - LUNG NEOPLASM [None]
  - LYMPHADENOPATHY [None]
  - NASAL CONGESTION [None]
  - NO THERAPEUTIC RESPONSE [None]
